FAERS Safety Report 19413941 (Version 2)
Quarter: 2021Q2

REPORT INFORMATION
  Report Type: Spontaneous
  Country: GR (occurrence: GR)
  Receive Date: 20210615
  Receipt Date: 20210625
  Transmission Date: 20210717
  Serious: Yes (Other)
  Sender: FDA-Public Use
  Company Number: GR-JNJFOC-20210617857

PATIENT
  Age: 36 Year
  Sex: Female
  Weight: 57 kg

DRUGS (3)
  1. ALOPERIDIN [Suspect]
     Active Substance: HALOPERIDOL
     Indication: INSOMNIA
  2. ALOPERIDIN [Suspect]
     Active Substance: HALOPERIDOL
     Indication: MENTAL DISORDER
     Dosage: HALF IN MORNING, HALF IN AFTERNOON AND 1 IN EVENING
     Route: 048
     Dates: start: 1981
  3. ALOPERIDIN [Suspect]
     Active Substance: HALOPERIDOL
     Indication: TENSION
     Dosage: HALF IN MORNING, HALF IN AFTERNOON AND 1 IN EVENING
     Route: 048

REACTIONS (2)
  - Meningioma [Unknown]
  - Parkinsonism [Recovering/Resolving]

NARRATIVE: CASE EVENT DATE: 1981
